FAERS Safety Report 16645214 (Version 3)
Quarter: 2021Q1

REPORT INFORMATION
  Report Type: Spontaneous
  Country: US (occurrence: US)
  Receive Date: 20190729
  Receipt Date: 20210126
  Transmission Date: 20210419
  Serious: Yes (Hospitalization, Other)
  Sender: FDA-Public Use
  Company Number: US-GILEAD-2019-0419936

PATIENT
  Age: 46 Year
  Sex: Male

DRUGS (2)
  1. TRUVADA [Suspect]
     Active Substance: EMTRICITABINE\TENOFOVIR DISOPROXIL FUMARATE
     Indication: HIV INFECTION
     Dosage: UNK
     Route: 065
     Dates: start: 201612, end: 201704
  2. TRUVADA [Suspect]
     Active Substance: EMTRICITABINE\TENOFOVIR DISOPROXIL FUMARATE
     Dosage: UNK
     Route: 048
     Dates: start: 201702, end: 201706

REACTIONS (9)
  - Renal impairment [Not Recovered/Not Resolved]
  - Comminuted fracture [Not Recovered/Not Resolved]
  - Acute kidney injury [Recovered/Resolved]
  - Tibia fracture [Not Recovered/Not Resolved]
  - Chronic kidney disease [Not Recovered/Not Resolved]
  - Osteoporosis [Not Recovered/Not Resolved]
  - Bone loss [Unknown]
  - Bone density decreased [Not Recovered/Not Resolved]
  - Osteonecrosis [Unknown]

NARRATIVE: CASE EVENT DATE: 2017
